FAERS Safety Report 25913222 (Version 1)
Quarter: 2025Q4

REPORT INFORMATION
  Report Type: Spontaneous
  Country: EU (occurrence: EU)
  Receive Date: 20251013
  Receipt Date: 20251013
  Transmission Date: 20260119
  Serious: Yes (Hospitalization, Other)
  Sender: AUROBINDO
  Company Number: EU-AEMPS-1756489

PATIENT
  Age: 85 Year
  Sex: Female
  Weight: 80 kg

DRUGS (4)
  1. QUETIAPINE [Suspect]
     Active Substance: QUETIAPINE
     Indication: Insomnia
     Dosage: 50 MILLIGRAM, ONCE A DAY (25MG 0-0-1)
     Route: 048
     Dates: start: 20190614
  2. LITHIUM CARBONATE [Suspect]
     Active Substance: LITHIUM CARBONATE
     Indication: Bipolar I disorder
     Dosage: 600 MILLIGRAM, ONCE A DAY (400MG 0.5-0-1)
     Route: 048
     Dates: start: 20180123
  3. ABILIFY [Suspect]
     Active Substance: ARIPIPRAZOLE
     Indication: Bipolar I disorder
     Dosage: 10 MILLIGRAM, ONCE A DAY (5MG 2-0-0)
     Route: 048
     Dates: start: 20250227, end: 20250826
  4. SERTRALINE HYDROCHLORIDE [Suspect]
     Active Substance: SERTRALINE HYDROCHLORIDE
     Indication: Bipolar I disorder
     Dosage: 100 MILLIGRAM, ONCE A DAY (100MG 0-0-1)
     Route: 048
     Dates: start: 20250617, end: 20250826

REACTIONS (4)
  - Encephalopathy [Recovered/Resolved]
  - Depressed level of consciousness [Recovered/Resolved]
  - Asterixis [Recovered/Resolved]
  - Facial myokymia [Recovered/Resolved]

NARRATIVE: CASE EVENT DATE: 20250821
